FAERS Safety Report 5257108-0 (Version None)
Quarter: 2007Q1

REPORT INFORMATION
  Report Type: 
  Country: None (occurrence: None)
  Receive Date: 20070307
  Receipt Date: 20070305
  Transmission Date: 20070707
  Serious: Yes (Hospitalization)
  Sender: FDA-Public Use
  Company Number: US-BRISTOL-MYERS SQUIBB COMPANY-13701065

PATIENT
  Age: 60 Year
  Sex: Male

DRUGS (1)
  1. DEFINITY [Suspect]
     Dates: start: 20070305

REACTIONS (4)
  - BACK PAIN [None]
  - DYSPNOEA [None]
  - HOT FLUSH [None]
  - PANIC ATTACK [None]
